FAERS Safety Report 5119685-X (Version None)
Quarter: 2006Q4

REPORT INFORMATION
  Report Type: 
  Country: None (occurrence: None)
  Receive Date: 20061003
  Receipt Date: 20060814
  Transmission Date: 20070319
  Serious: Yes (Hospitalization)
  Sender: FDA-Public Use
  Company Number: BR-AVENTIS-200618667GDDC

PATIENT
  Age: 53 Year
  Sex: Female
  Weight: 67 kg

DRUGS (5)
  1. FLAGYL [Suspect]
     Indication: HELICOBACTER GASTRITIS
     Route: 048
     Dates: start: 20060803, end: 20060809
  2. CIPROFLOXACIN [Suspect]
     Indication: HELICOBACTER GASTRITIS
     Route: 048
     Dates: start: 20060803, end: 20060809
  3. MICARDIS [Concomitant]
     Indication: HYPERTENSION
     Route: 048
  4. PANTOPRAZOLE SODIUM [Concomitant]
     Indication: GASTRIC DISORDER
     Route: 048
     Dates: start: 20060804
  5. RANITIDINE [Concomitant]
     Indication: GASTRIC DISORDER
     Route: 048
     Dates: end: 20060803

REACTIONS (11)
  - DIARRHOEA [None]
  - IMMUNODEFICIENCY [None]
  - ORAL INTAKE REDUCED [None]
  - ORAL MUCOSAL BLISTERING [None]
  - PAIN [None]
  - PARAESTHESIA [None]
  - PYREXIA [None]
  - SKIN DISORDER [None]
  - SKIN INJURY [None]
  - SWELLING FACE [None]
  - VASCULITIS [None]
